FAERS Safety Report 11525755 (Version 1)
Quarter: 2015Q3

REPORT INFORMATION
  Report Type: Spontaneous
  Country: GR (occurrence: GR)
  Receive Date: 20150918
  Receipt Date: 20150918
  Transmission Date: 20151125
  Serious: Yes (Hospitalization)
  Sender: FDA-Public Use
  Company Number: GR-009507513-1509GRC009075

PATIENT
  Sex: Female

DRUGS (2)
  1. JANUMET [Suspect]
     Active Substance: METFORMIN HYDROCHLORIDE\SITAGLIPTIN PHOSPHATE
     Indication: DIABETES MELLITUS
     Dosage: 1 TB EVERY DAY
     Route: 048
     Dates: start: 2011
  2. T4 [Concomitant]
     Active Substance: LEVOTHYROXINE

REACTIONS (2)
  - Underdose [Unknown]
  - Hernia [Unknown]

NARRATIVE: CASE EVENT DATE: 201506
